FAERS Safety Report 6338559-X (Version None)
Quarter: 2009Q3

REPORT INFORMATION
  Report Type: 
  Country: None (occurrence: None)
  Receive Date: 20090901
  Receipt Date: 20090821
  Transmission Date: 20100115
  Serious: Yes (Hospitalization)
  Sender: FDA-Public Use
  Company Number: TCI2009A02422

PATIENT
  Age: 82 Year
  Sex: Male

DRUGS (7)
  1. TAKEPRON OD TABLETS 30 (LANSOPRAZOLE) [Suspect]
     Indication: GASTROINTESTINAL ENDOSCOPIC THERAPY
     Dosage: 30 MG (30 MG, 1 IN 1 D), PER ORAL
     Route: 048
     Dates: start: 20080205, end: 20090518
  2. TAKEPRON OD TABLETS 30 (LANSOPRAZOLE) [Suspect]
     Indication: GASTROOESOPHAGEAL REFLUX DISEASE
     Dosage: 30 MG (30 MG, 1 IN 1 D), PER ORAL
     Route: 048
     Dates: start: 20080205, end: 20090518
  3. PLAVIX [Concomitant]
  4. KETAS (IBUDILAST) [Concomitant]
  5. DIOVAN [Concomitant]
  6. URSO 250 [Concomitant]
  7. MUCOSTA(REBAMIPIDE) [Concomitant]

REACTIONS (5)
  - COLITIS COLLAGENOUS [None]
  - DRUG INEFFECTIVE [None]
  - FAECAL INCONTINENCE [None]
  - GASTRIC CANCER [None]
  - WEIGHT DECREASED [None]
